FAERS Safety Report 15054905 (Version 1)
Quarter: 2018Q2

REPORT INFORMATION
  Report Type: Spontaneous
  Country: US (occurrence: US)
  Receive Date: 20180603
  Receipt Date: 20180603
  Transmission Date: 20180711
  Serious: Yes (Other)
  Sender: FDA-Public Use
  Company Number: None

PATIENT
  Age: 67 Year
  Sex: Female
  Weight: 66.6 kg

DRUGS (7)
  1. CALCIUM [Concomitant]
     Active Substance: CALCIUM
  2. NITROFURANTOIN MONO/MAC [Suspect]
     Active Substance: NITROFURANTOIN\NITROFURANTOIN MONOHYDRATE
     Indication: URINARY TRACT INFECTION
     Dosage: ?          QUANTITY:20 CAPSULE(S);?
     Route: 048
     Dates: start: 20180520, end: 20180528
  3. VITAMIN C [Concomitant]
     Active Substance: ASCORBIC ACID
  4. CRESTOR [Concomitant]
     Active Substance: ROSUVASTATIN CALCIUM
  5. MVI [Concomitant]
     Active Substance: VITAMINS
  6. VITAMIN D3 [Concomitant]
     Active Substance: CHOLECALCIFEROL
  7. ASA [Concomitant]
     Active Substance: ASPIRIN

REACTIONS (6)
  - Malaise [None]
  - Migraine [None]
  - Decreased appetite [None]
  - Bedridden [None]
  - Influenza like illness [None]
  - Arthralgia [None]

NARRATIVE: CASE EVENT DATE: 20180528
